FAERS Safety Report 12145987 (Version 2)
Quarter: 2019Q2

REPORT INFORMATION
  Report Type: Spontaneous
  Country: IN (occurrence: IN)
  Receive Date: 20160303
  Receipt Date: 20190621
  Transmission Date: 20190711
  Serious: Yes (Other)
  Sender: FDA-Public Use
  Company Number: IN-INDIVIOR LIMITED-INDV-088283-2016

PATIENT
  Age: 20 Year
  Sex: Male

DRUGS (1)
  1. BUPRENORPHINE. [Suspect]
     Active Substance: BUPRENORPHINE
     Indication: DRUG DEPENDENCE
     Dosage: 2-4MG, UNK
     Route: 060

REACTIONS (4)
  - Euphoric mood [Unknown]
  - Agitation [Unknown]
  - Hallucinations, mixed [Unknown]
  - Mental disorder [Unknown]
